FAERS Safety Report 6749391-7 (Version None)
Quarter: 2010Q2

REPORT INFORMATION
  Report Type: 
  Country: None (occurrence: None)
  Receive Date: 20100601
  Receipt Date: 20100521
  Transmission Date: 20101027
  Serious: Yes (Other)
  Sender: FDA-Public Use
  Company Number: US-ASTRAZENECA-2010SE16495

PATIENT
  Age: 31346 Day
  Sex: Male
  Weight: 79.9 kg

DRUGS (14)
  1. METOPROLOL SUCCINATE [Suspect]
     Indication: HYPERTENSION
     Dosage: TOPROL-XL
     Route: 048
     Dates: end: 20100201
  2. METOPROLOL SUCCINATE [Suspect]
     Dosage: GENERIC METOPROLOL SUCCINATE (PAR) 50 MG DAILY
     Route: 048
     Dates: start: 20100201, end: 20100413
  3. METOPROLOL SUCCINATE [Suspect]
     Dosage: TOPROL-XL 50 MG DAILY
     Route: 048
     Dates: start: 20100413
  4. COZAAR [Concomitant]
     Indication: HYPERTENSION
     Dosage: 25 MG AT BED TIME ON DIALYSIS DAYS
     Route: 048
  5. AMIODARONE HCL [Concomitant]
     Route: 048
  6. ASPIRIN [Concomitant]
     Route: 048
  7. LIPITOR [Concomitant]
     Route: 048
  8. PHOSLO [Concomitant]
     Route: 048
  9. ZETIA [Concomitant]
     Route: 048
  10. FLONASE [Concomitant]
     Dosage: ONE SPRAY IN EACH NOSTRIL TWO TIMES A DAY
     Route: 045
  11. XALATAN [Concomitant]
     Route: 047
  12. SYNTHROID [Concomitant]
     Route: 048
  13. PROTONIX [Concomitant]
     Route: 048
  14. FOLIC ACID VITAMIN B [Concomitant]
     Route: 048

REACTIONS (1)
  - BLOOD PRESSURE INCREASED [None]
